FAERS Safety Report 4494838-2 (Version None)
Quarter: 2004Q4

REPORT INFORMATION
  Report Type: 
  Country: None (occurrence: None)
  Receive Date: 20041103
  Receipt Date: 20041026
  Transmission Date: 20050328
  Serious: Yes (Other)
  Sender: FDA-Public Use
  Company Number: 805#1#2004-00032

PATIENT
  Age: 74 Year
  Sex: Female

DRUGS (3)
  1. ALPROSTADIL [Suspect]
     Indication: ATHEROSCLEROSIS OBLITERANS
     Dosage: I.N.R. INTRAVENOUS DRIP
     Route: 041
     Dates: start: 20040927, end: 20041011
  2. CILOSTAZOL [Concomitant]
  3. WARFARIN SODIUM [Concomitant]

REACTIONS (2)
  - COAGULOPATHY [None]
  - GASTROINTESTINAL HAEMORRHAGE [None]
